FAERS Safety Report 6321159-5 (Version None)
Quarter: 2009Q3

REPORT INFORMATION
  Report Type: 
  Country: None (occurrence: None)
  Receive Date: 20090822
  Receipt Date: 20090309
  Transmission Date: 20100115
  Serious: No
  Sender: FDA-Public Use
  Company Number: US-ABBOTT-08P-163-0489368-00

PATIENT
  Sex: Female
  Weight: 53.118 kg

DRUGS (22)
  1. NIASPAN [Suspect]
     Indication: HIGH DENSITY LIPOPROTEIN DECREASED
     Dosage: EVERY NIGHT EVERY NIGHT
     Dates: start: 20081110
  2. NIASPAN [Suspect]
     Indication: LOW DENSITY LIPOPROTEIN INCREASED
  3. PREMARIN [Concomitant]
     Indication: DRUG USE FOR UNKNOWN INDICATION
  4. VITAMIN B-12 [Concomitant]
     Indication: DRUG USE FOR UNKNOWN INDICATION
     Route: 050
  5. PROTONIX [Concomitant]
     Indication: GASTROOESOPHAGEAL REFLUX DISEASE
  6. CALTRATE [Concomitant]
     Indication: MEDICAL DIET
     Route: 048
  7. DULCOLAX [Concomitant]
     Indication: DRUG USE FOR UNKNOWN INDICATION
  8. KLONOPIN [Concomitant]
     Indication: NECK PAIN
     Route: 048
  9. CIPRO [Concomitant]
     Indication: URINARY TRACT INFECTION
     Dosage: AFTER INTERCOURSE
  10. ULTRAM [Concomitant]
     Indication: PAIN
  11. BONIVA [Concomitant]
     Indication: OSTEOPOROSIS
     Route: 042
     Dates: start: 20080802
  12. TOPROL-XL [Concomitant]
     Indication: HYPERTENSION
     Route: 048
  13. ASPIRIN [Concomitant]
     Indication: CARDIOVASCULAR EVENT PROPHYLAXIS
  14. ASPIRIN [Concomitant]
  15. SYNTHROID [Concomitant]
     Indication: DRUG USE FOR UNKNOWN INDICATION
     Dates: start: 19840101
  16. ZETIA [Concomitant]
     Indication: BLOOD CHOLESTEROL INCREASED
  17. AMITIZA [Concomitant]
     Indication: CONSTIPATION
  18. CENTRUM [Concomitant]
     Indication: MEDICAL DIET
     Route: 048
  19. UNKNOWN MEDICATION [Concomitant]
     Indication: DRUG USE FOR UNKNOWN INDICATION
  20. DYAZIDE [Concomitant]
     Indication: HYPERTENSION
     Dosage: 37/25MG
  21. PRO-BANTHINE [Concomitant]
     Indication: GASTROOESOPHAGEAL REFLUX DISEASE
  22. CORRECTOL [Concomitant]
     Indication: CONSTIPATION
     Route: 048

REACTIONS (6)
  - ASTHENIA [None]
  - FLUSHING [None]
  - HEADACHE [None]
  - PRURITUS [None]
  - SWELLING [None]
  - TREMOR [None]
